FAERS Safety Report 4452714-5 (Version None)
Quarter: 2004Q3

REPORT INFORMATION
  Report Type: 
  Country: None (occurrence: None)
  Receive Date: 20040813
  Receipt Date: 20040427
  Transmission Date: 20050211
  Serious: No
  Sender: FDA-Public Use
  Company Number: S04-USA-03487-01

PATIENT
  Age: 75 Year
  Sex: Female

DRUGS (8)
  1. NAMENDA [Suspect]
     Indication: DEMENTIA ALZHEIMER'S TYPE
     Dosage: 5 MG QD PO
     Route: 048
     Dates: start: 20040415, end: 20040421
  2. NAMENDA [Suspect]
     Indication: DEMENTIA ALZHEIMER'S TYPE
     Dosage: 5 MG BID PO
     Route: 048
     Dates: start: 20040422
  3. AMBIEN [Concomitant]
  4. CARDIZEM [Concomitant]
  5. PRINIVIL [Concomitant]
  6. ETODOLAC [Concomitant]
  7. TRAMADOL HCL [Concomitant]
  8. GLUCOSAMINE [Concomitant]

REACTIONS (4)
  - ABNORMAL BEHAVIOUR [None]
  - CONSTIPATION [None]
  - DECREASED APPETITE [None]
  - JOINT SWELLING [None]
